FAERS Safety Report 4771291-2 (Version None)
Quarter: 2005Q3

REPORT INFORMATION
  Report Type: 
  Country: None (occurrence: None)
  Receive Date: 20050915
  Receipt Date: 20020516
  Transmission Date: 20060218
  Serious: Yes (Hospitalization, Other)
  Sender: FDA-Public Use
  Company Number: US-MERCK-0205USA02077

PATIENT
  Age: 83 Year
  Sex: Female
  Weight: 61 kg

DRUGS (1)
  1. VIOXX [Suspect]
     Route: 048
     Dates: start: 20010101

REACTIONS (68)
  - ACTIVATED PARTIAL THROMBOPLASTIN TIME PROLONGED [None]
  - ACUTE MYOCARDIAL INFARCTION [None]
  - ADVERSE EVENT [None]
  - ANAEMIA [None]
  - ANXIETY [None]
  - AORTIC VALVE REPLACEMENT [None]
  - AORTIC VALVE STENOSIS [None]
  - ARTHRALGIA [None]
  - ASTHENIA [None]
  - ATELECTASIS [None]
  - ATRIOVENTRICULAR BLOCK FIRST DEGREE [None]
  - BLADDER DISORDER [None]
  - BRADYCARDIA [None]
  - CARDIAC VALVE DISEASE [None]
  - CAROTID ARTERY DISEASE [None]
  - CAROTID ARTERY STENOSIS [None]
  - CATARACT [None]
  - CEREBELLAR INFARCTION [None]
  - CEREBRAL INFARCTION [None]
  - CEREBRAL ISCHAEMIA [None]
  - CEREBROVASCULAR ACCIDENT [None]
  - CLOSED HEAD INJURY [None]
  - CONCUSSION [None]
  - CONFUSIONAL STATE [None]
  - CORONARY ARTERY DISEASE [None]
  - DECREASED APPETITE [None]
  - DECUBITUS ULCER [None]
  - DELIRIUM [None]
  - DEMENTIA [None]
  - DEMENTIA ALZHEIMER'S TYPE [None]
  - DEPRESSED LEVEL OF CONSCIOUSNESS [None]
  - DIFFICULTY IN WALKING [None]
  - DIZZINESS [None]
  - DRUG HYPERSENSITIVITY [None]
  - DRY MOUTH [None]
  - DYSPNOEA [None]
  - DYSTONIA [None]
  - ELECTROCARDIOGRAM POOR R-WAVE PROGRESSION [None]
  - EMBOLIC STROKE [None]
  - EYE DISORDER [None]
  - FAECALOMA [None]
  - FALL [None]
  - GALLBLADDER OPERATION [None]
  - HYPOKALAEMIA [None]
  - INJURY [None]
  - INSOMNIA [None]
  - INTERNATIONAL NORMALISED RATIO DECREASED [None]
  - JOINT SWELLING [None]
  - LACERATION [None]
  - LETHARGY [None]
  - LUNG INFILTRATION [None]
  - MEMORY IMPAIRMENT [None]
  - MENTAL STATUS CHANGES [None]
  - MYOCARDIAL ISCHAEMIA [None]
  - NUCLEAR MAGNETIC RESONANCE IMAGING BRAIN ABNORMAL [None]
  - OEDEMA PERIPHERAL [None]
  - PAIN IN EXTREMITY [None]
  - PARKINSON'S DISEASE [None]
  - PERIPHERAL VASCULAR DISORDER [None]
  - PERONEAL NERVE PALSY [None]
  - REFUSAL OF TREATMENT BY RELATIVE [None]
  - RENAL CYST [None]
  - SEASONAL ALLERGY [None]
  - SINUS BRADYCARDIA [None]
  - SKIN ULCER [None]
  - URINARY RETENTION [None]
  - URINARY TRACT INFECTION [None]
  - WEIGHT DECREASED [None]
